FAERS Safety Report 24126829 (Version 1)
Quarter: 2024Q3

REPORT INFORMATION
  Report Type: Spontaneous
  Country: US (occurrence: US)
  Receive Date: 20240723
  Receipt Date: 20240723
  Transmission Date: 20241016
  Serious: No
  Sender: IPSEN
  Company Number: US-IPSEN Group, Research and Development-2024-13958

PATIENT
  Sex: Female

DRUGS (14)
  1. SOMATULINE DEPOT [Suspect]
     Active Substance: LANREOTIDE ACETATE
     Indication: Acromegaly
     Dosage: 90 MG/0.ML UNDER THE SKIN SUBCUTANEOUS INJECTION
     Route: 058
     Dates: start: 20240509
  2. SOMATULINE DEPOT [Suspect]
     Active Substance: LANREOTIDE ACETATE
     Dosage: 90 MG/0.ML UNDER THE SKIN SUBCUTANEOUS INJECTION
     Route: 058
  3. ASPIRIN [Concomitant]
     Active Substance: ASPIRIN
  4. ATORVASTATIN [Concomitant]
     Active Substance: ATORVASTATIN
  5. BUSPIRONE [Concomitant]
     Active Substance: BUSPIRONE HYDROCHLORIDE
  6. CABERGOLIN? [Concomitant]
  7. HYDROCHLOROTHIAZIDE [Concomitant]
     Active Substance: HYDROCHLOROTHIAZIDE
  8. LANTUS SOLOS [Concomitant]
     Dosage: INJ 100/ML
  9. LEXAPRO [Concomitant]
     Active Substance: ESCITALOPRAM OXALATE
     Dosage: TAB 1O MG
  10. LISINOPRIL [Concomitant]
     Active Substance: LISINOPRIL
     Dosage: TAB 10MG
  11. NOVOLOG MIX FLEXPEN [Concomitant]
  12. OCTREOTIDE [Concomitant]
     Active Substance: OCTREOTIDE\OCTREOTIDE ACETATE
     Dosage: 1OO MCG
  13. SANDOSTATIN LAR DEPOT [Concomitant]
     Dosage: 30MG SDV
  14. VITAMIN D3 [Concomitant]
     Active Substance: CHOLECALCIFEROL
     Dosage: CAP 2000^UNIT

REACTIONS (2)
  - Blood glucose increased [Not Recovered/Not Resolved]
  - Drug ineffective [Unknown]
